FAERS Safety Report 7651414-8 (Version None)
Quarter: 2011Q3

REPORT INFORMATION
  Report Type: 
  Country: None (occurrence: None)
  Receive Date: 20110802
  Receipt Date: 20110722
  Transmission Date: 20111222
  Serious: Yes (Hospitalization)
  Sender: FDA-Public Use
  Company Number: PHHY2011US42495

PATIENT
  Sex: Male
  Weight: 53.061 kg

DRUGS (2)
  1. LOVENOX [Concomitant]
  2. EXJADE [Suspect]
     Indication: SICKLE CELL ANAEMIA
     Dosage: 1000 MG, QD
     Route: 048
     Dates: start: 20071102, end: 20110101

REACTIONS (12)
  - CEREBROVASCULAR ACCIDENT [None]
  - BACK PAIN [None]
  - VISION BLURRED [None]
  - DYSARTHRIA [None]
  - MONOPARESIS [None]
  - HEADACHE [None]
  - PAIN IN EXTREMITY [None]
  - HAEMATOCRIT DECREASED [None]
  - HAEMORRHAGE INTRACRANIAL [None]
  - SICKLE CELL ANAEMIA WITH CRISIS [None]
  - HAEMOGLOBIN DECREASED [None]
  - GAIT DISTURBANCE [None]
